FAERS Safety Report 21739237 (Version 1)
Quarter: 2022Q4

REPORT INFORMATION
  Report Type: Report from Study
  Country: CN (occurrence: CN)
  Receive Date: 20221216
  Receipt Date: 20221216
  Transmission Date: 20230112
  Serious: Yes (Other)
  Sender: FDA-Public Use
  Company Number: CN-SUN PHARMACEUTICAL INDUSTRIES LTD-2020R1-245423

PATIENT
  Age: 7 Year
  Sex: Female

DRUGS (3)
  1. OXALIPLATIN [Suspect]
     Active Substance: OXALIPLATIN
     Indication: Hepatoblastoma
     Dosage: 130 MG/M2/DAY, OVER A 2 H INFUSION ON DAY 1
     Route: 065
  2. VINCRISTINE [Suspect]
     Active Substance: VINCRISTINE
     Indication: Hepatoblastoma
     Dosage: 1.5 MG/M2/DAY 9 1 DAY OVER 15 MIN ON DAY 1
     Route: 042
  3. TOPOTECAN [Suspect]
     Active Substance: TOPOTECAN HYDROCHLORIDE
     Indication: Hepatoblastoma
     Dosage: 0.7 MG/M2/DAY 1 H INFUSION ON DAYS 1- 5
     Route: 065

REACTIONS (2)
  - Therapy partial responder [Unknown]
  - Vomiting [Unknown]
